FAERS Safety Report 9166048 (Version 1)
Quarter: 2013Q1

REPORT INFORMATION
  Report Type: Spontaneous
  Country: PH (occurrence: PH)
  Receive Date: 20130315
  Receipt Date: 20130315
  Transmission Date: 20140127
  Serious: Yes (Death)
  Sender: FDA-Public Use
  Company Number: PH-BAXTER-2013BAX009231

PATIENT
  Sex: Male
  Weight: 55 kg

DRUGS (1)
  1. DIANEAL PD2 WITH 1.5% DEXTROSE [Suspect]
     Indication: PERITONEAL DIALYSIS
     Route: 033
     Dates: start: 20130129, end: 20130308

REACTIONS (4)
  - Hypovolaemic shock [Fatal]
  - Upper gastrointestinal haemorrhage [Fatal]
  - Cerebrovascular accident [Unknown]
  - Hypertension [Unknown]
